FAERS Safety Report 8260277-1 (Version None)
Quarter: 2012Q2

REPORT INFORMATION
  Report Type: 
  Country: None (occurrence: None)
  Receive Date: 20120404
  Receipt Date: 20120322
  Transmission Date: 20120825
  Serious: Yes (Hospitalization)
  Sender: FDA-Public Use
  Company Number: FR-ROCHE-1051863

PATIENT
  Age: 31 Year
  Sex: Male

DRUGS (6)
  1. MABTHERA [Suspect]
     Route: 042
     Dates: start: 20100401
  2. MABTHERA [Suspect]
     Indication: POLYMYOSITIS
     Route: 042
     Dates: start: 20090901
  3. PLAQUENIL [Suspect]
     Indication: POLYMYOSITIS
     Route: 048
     Dates: start: 20100901
  4. MABTHERA [Suspect]
     Route: 042
     Dates: start: 20110719
  5. MABTHERA [Suspect]
     Route: 042
     Dates: start: 20110701
  6. METHOTREXATE [Suspect]
     Indication: POLYMYOSITIS
     Route: 048

REACTIONS (2)
  - NEUROPATHY PERIPHERAL [None]
  - PERIPHERAL PARALYSIS [None]
